FAERS Safety Report 24440671 (Version 2)
Quarter: 2024Q4

REPORT INFORMATION
  Report Type: Report from Study
  Country: US (occurrence: US)
  Receive Date: 20241016
  Receipt Date: 20241017
  Transmission Date: 20250114
  Serious: No
  Sender: ROCHE
  Company Number: US-ROCHE-2998461

PATIENT
  Age: 5 Year
  Sex: Male
  Weight: 18.7 kg

DRUGS (9)
  1. HEMLIBRA [Suspect]
     Active Substance: EMICIZUMAB-KXWH
     Indication: Factor VIII deficiency
     Dosage: 60MG/0.4ML
     Route: 058
  2. HEMLIBRA [Suspect]
     Active Substance: EMICIZUMAB-KXWH
     Dosage: 30MG/1ML
     Route: 058
  3. TYLENOL [Concomitant]
     Active Substance: ACETAMINOPHEN
     Dosage: BY MOUTH EVERY 6 HOURS AS NEEDED FOR PAIN
     Route: 048
  4. EMICIZUMAB KXWH [Concomitant]
     Route: 058
  5. HEPARIN SODIUM, PORCINE [Concomitant]
     Active Substance: HEPARIN SODIUM
     Dosage: FLUSH PORT A CATH WITH 5MLS AFTER FACTOR AND SALINE IS GIVEN
  6. ROXICODONE [Concomitant]
     Active Substance: OXYCODONE HYDROCHLORIDE
     Dosage: TAKE 0.5 ML BY MOUTH EVERY 4 HOURS AS NEEDED FOR PAIN
  7. SODIUM CHLORIDE [Concomitant]
     Active Substance: SODIUM CHLORIDE
     Dosage: FLUSH WITH 5-10 MLS BEFORE AND AFTER FACTOR IS GIVEN
  8. AMICAR [Concomitant]
     Active Substance: AMINOCAPROIC ACID
  9. KOGENATE [Concomitant]
     Active Substance: ANTIHEMOPHILIC FACTOR, HUMAN RECOMBINANT

REACTIONS (2)
  - Blood pressure abnormal [Unknown]
  - Red cell distribution width decreased [Unknown]
